FAERS Safety Report 25221222 (Version 1)
Quarter: 2025Q2

REPORT INFORMATION
  Report Type: Spontaneous
  Country: GB (occurrence: GB)
  Receive Date: 20250421
  Receipt Date: 20250421
  Transmission Date: 20250716
  Serious: Yes (Hospitalization, Other)
  Sender: AMGEN
  Company Number: None

PATIENT
  Age: 46 Year
  Sex: Female
  Weight: 45 kg

DRUGS (1)
  1. PROLIA [Suspect]
     Active Substance: DENOSUMAB
     Indication: Adverse drug reaction
     Dosage: UNK, Q6MO (1 INJECTION)
     Route: 065
     Dates: start: 20200709

REACTIONS (1)
  - Atypical fracture [Recovered/Resolved with Sequelae]

NARRATIVE: CASE EVENT DATE: 20231008
